FAERS Safety Report 5036760-9 (Version None)
Quarter: 2006Q2

REPORT INFORMATION
  Report Type: 
  Country: None (occurrence: None)
  Receive Date: 20060622
  Receipt Date: 20060620
  Transmission Date: 20061013
  Serious: Yes (Other)
  Sender: FDA-Public Use
  Company Number: 212394

PATIENT
  Sex: Male

DRUGS (1)
  1. RITUXAN [Suspect]

REACTIONS (1)
  - MYOCARDIAL INFARCTION [None]
